FAERS Safety Report 11280196 (Version 1)
Quarter: 2015Q3

REPORT INFORMATION
  Report Type: Spontaneous
  Country: US (occurrence: None)
  Receive Date: 20150716
  Receipt Date: 20150716
  Transmission Date: 20151125
  Serious: Yes (Disabling, Other)
  Sender: FDA-Public Use
  Company Number: None

PATIENT
  Age: 28 Year
  Sex: Male
  Weight: 74.84 kg

DRUGS (2)
  1. SCOPOLAMINE [Suspect]
     Active Substance: SCOPOLAMINE
     Indication: HERNIA REPAIR
     Dosage: PATCH AT TIME OF SURGERY --
     Dates: start: 20150707, end: 20150709
  2. SCOPOLAMINE [Suspect]
     Active Substance: SCOPOLAMINE
     Indication: NAUSEA
     Dosage: PATCH AT TIME OF SURGERY --
     Dates: start: 20150707, end: 20150709

REACTIONS (12)
  - Dry mouth [None]
  - Dizziness [None]
  - Somnolence [None]
  - Disorientation [None]
  - Activities of daily living impaired [None]
  - Hallucination [None]
  - Mydriasis [None]
  - Disturbance in attention [None]
  - Decreased appetite [None]
  - Vision blurred [None]
  - Confusional state [None]
  - Dysuria [None]

NARRATIVE: CASE EVENT DATE: 20150707
